FAERS Safety Report 4800169-0 (Version None)
Quarter: 2005Q4

REPORT INFORMATION
  Report Type: 
  Country: None (occurrence: None)
  Receive Date: 20051017
  Receipt Date: 20051006
  Transmission Date: 20060501
  Serious: Yes (Death)
  Sender: FDA-Public Use
  Company Number: US-JNJFOC-20050902743

PATIENT
  Sex: Male
  Weight: 2.27 kg

DRUGS (2)
  1. RISPERDAL [Suspect]
     Route: 048
  2. RISPERDAL [Suspect]
     Indication: DRUG USE FOR UNKNOWN INDICATION
     Route: 048

REACTIONS (6)
  - ACCIDENTAL OVERDOSE [None]
  - COLLAPSE OF LUNG [None]
  - DEATH [None]
  - LOSS OF CONSCIOUSNESS [None]
  - PNEUMONIA STAPHYLOCOCCAL [None]
  - WRONG DRUG ADMINISTERED [None]
